FAERS Safety Report 20226297 (Version 1)
Quarter: 2021Q4

REPORT INFORMATION
  Report Type: Spontaneous
  Country: GB (occurrence: GB)
  Receive Date: 20211224
  Receipt Date: 20211224
  Transmission Date: 20220303
  Serious: Yes (Other)
  Sender: FDA-Public Use
  Company Number: None

PATIENT
  Sex: Male

DRUGS (6)
  1. SIMVASTATIN [Suspect]
     Active Substance: SIMVASTATIN
     Indication: Acute myocardial infarction
     Dates: start: 20210720, end: 20210811
  2. LANSOPRAZOLE [Concomitant]
     Active Substance: LANSOPRAZOLE
     Dates: start: 20210513
  3. RAMIPRIL [Concomitant]
     Active Substance: RAMIPRIL
     Dates: start: 20210513
  4. ATORVASTATIN [Concomitant]
     Active Substance: ATORVASTATIN
     Dates: start: 20210513, end: 20210720
  5. ASPIRIN [Concomitant]
     Active Substance: ASPIRIN
     Dates: start: 20210513
  6. CLOPIDOGREL [Concomitant]
     Active Substance: CLOPIDOGREL BISULFATE
     Dates: start: 20210513

REACTIONS (3)
  - Visual impairment [Unknown]
  - Confusional state [Unknown]
  - Off label use [Unknown]
